FAERS Safety Report 8567365 (Version 14)
Quarter: 2015Q2

REPORT INFORMATION
  Report Type: Report from Study
  Country: JP (occurrence: JP)
  Receive Date: 20120517
  Receipt Date: 20150624
  Transmission Date: 20150821
  Serious: Yes (Hospitalization, Other)
  Sender: FDA-Public Use
  Company Number: PHHY2012JP040207

PATIENT
  Age: 3 Year
  Sex: Female
  Weight: 14 kg

DRUGS (32)
  1. ACZ885 [Suspect]
     Active Substance: CANAKINUMAB
     Indication: FAMILIAL COLD AUTOINFLAMMATORY SYNDROME
     Dosage: 30 MG, (6 MG/KG) EVERY 7 WEEKS
     Route: 058
     Dates: start: 20120319, end: 20120319
  2. ACZ885 [Suspect]
     Active Substance: CANAKINUMAB
     Dosage: 100 MG, UNK
     Route: 058
     Dates: start: 20130819, end: 20130819
  3. ACZ885 [Suspect]
     Active Substance: CANAKINUMAB
     Dosage: 30 MG, QD
     Route: 058
     Dates: start: 20120319, end: 20120319
  4. ACZ885 [Suspect]
     Active Substance: CANAKINUMAB
     Dosage: 60 MG, QD
     Route: 058
     Dates: start: 20120813, end: 20120813
  5. ACZ885 [Suspect]
     Active Substance: CANAKINUMAB
     Dosage: 60 MG, QD
     Route: 058
     Dates: start: 20130130, end: 20130130
  6. ACZ885 [Suspect]
     Active Substance: CANAKINUMAB
     Dosage: 60 MG, UNK
     Route: 058
     Dates: start: 20120618, end: 20120618
  7. ACZ885 [Suspect]
     Active Substance: CANAKINUMAB
     Dosage: 100 MG, UNK
     Route: 058
     Dates: start: 20131007, end: 20131007
  8. ACZ885 [Suspect]
     Active Substance: CANAKINUMAB
     Dosage: 60 MG, UNK
     Route: 058
     Dates: start: 20121203, end: 20121203
  9. ACZ885 [Suspect]
     Active Substance: CANAKINUMAB
     Dosage: 100 MG, UNK
     Route: 058
     Dates: start: 20140114, end: 20140114
  10. ACZ885 [Suspect]
     Active Substance: CANAKINUMAB
     Dosage: 60 MG, QD
     Route: 058
     Dates: start: 20121009, end: 20121009
  11. ACZ885 [Suspect]
     Active Substance: CANAKINUMAB
     Dosage: 100 MG, QD
     Route: 058
     Dates: start: 20130509, end: 20130509
  12. ACZ885 [Suspect]
     Active Substance: CANAKINUMAB
     Dosage: 100 MG, QD
     Route: 058
     Dates: start: 20140304, end: 20140304
  13. ACZ885 [Suspect]
     Active Substance: CANAKINUMAB
     Dosage: UNK
     Route: 065
  14. ACZ885 [Suspect]
     Active Substance: CANAKINUMAB
     Indication: COLD URTICARIA
     Dosage: 60 MG, UNK
     Route: 058
     Dates: start: 20120423, end: 20120423
  15. ACZ885 [Suspect]
     Active Substance: CANAKINUMAB
     Dosage: 100 MG, UNK
     Route: 058
     Dates: start: 20130509, end: 20130509
  16. ACZ885 [Suspect]
     Active Substance: CANAKINUMAB
     Dosage: 100 MG, QD
     Route: 058
     Dates: start: 20130819, end: 20130819
  17. ACZ885 [Suspect]
     Active Substance: CANAKINUMAB
     Dosage: 100 MG, QD
     Route: 058
     Dates: start: 20131125, end: 20131125
  18. ACZ885 [Suspect]
     Active Substance: CANAKINUMAB
     Dosage: 60 MG, UNK
     Route: 058
     Dates: start: 20130130, end: 20130130
  19. ACZ885 [Suspect]
     Active Substance: CANAKINUMAB
     Dosage: 100 MG, UNK
     Route: 058
     Dates: start: 20140304, end: 20140304
  20. ACZ885 [Suspect]
     Active Substance: CANAKINUMAB
     Dosage: 100 MG, UNK
     Route: 058
     Dates: start: 20130704, end: 20130704
  21. ACZ885 [Suspect]
     Active Substance: CANAKINUMAB
     Dosage: 100 MG, QD
     Route: 058
     Dates: start: 20130704, end: 20130704
  22. ACZ885 [Suspect]
     Active Substance: CANAKINUMAB
     Dosage: 100 MG, QD
     Route: 058
     Dates: start: 20131007, end: 20131007
  23. ACZ885 [Suspect]
     Active Substance: CANAKINUMAB
     Dosage: 100 MG, UNK
     Route: 058
     Dates: start: 20131125, end: 20131125
  24. ACZ885 [Suspect]
     Active Substance: CANAKINUMAB
     Dosage: 60 MG, QD
     Route: 058
     Dates: start: 20120423, end: 20120423
  25. ACZ885 [Suspect]
     Active Substance: CANAKINUMAB
     Dosage: 100 MG, QD
     Route: 058
     Dates: start: 20140114, end: 20140114
  26. ACZ885 [Suspect]
     Active Substance: CANAKINUMAB
     Dosage: 60 MG, UNK
     Route: 058
     Dates: start: 20120813, end: 20120813
  27. ACZ885 [Suspect]
     Active Substance: CANAKINUMAB
     Dosage: 60 MG, UNK
     Route: 058
     Dates: start: 20121009, end: 20121009
  28. ACZ885 [Suspect]
     Active Substance: CANAKINUMAB
     Dosage: 100 MG, UNK
     Route: 058
     Dates: start: 20130314, end: 20130314
  29. ACZ885 [Suspect]
     Active Substance: CANAKINUMAB
     Dosage: 60 MG, QD
     Route: 058
     Dates: start: 20120618, end: 20120618
  30. ACZ885 [Suspect]
     Active Substance: CANAKINUMAB
     Dosage: 60 MG, QD
     Route: 058
     Dates: start: 20121203, end: 20121203
  31. ACZ885 [Suspect]
     Active Substance: CANAKINUMAB
     Dosage: 100 MG, QD
     Route: 058
     Dates: start: 20130314, end: 20130314
  32. OZEX [Concomitant]
     Active Substance: TOSUFLOXACIN TOSYLATE
     Indication: PRODUCT USED FOR UNKNOWN INDICATION
     Dosage: 180 MG, QD
     Route: 048
     Dates: start: 20121203, end: 20121216

REACTIONS (29)
  - Gastroenteritis [Recovering/Resolving]
  - Streptococcal infection [Recovered/Resolved]
  - Acetonaemic vomiting [Recovered/Resolved]
  - Acute tonsillitis [Recovered/Resolved]
  - Upper respiratory tract infection [Recovered/Resolved]
  - Upper respiratory tract infection [Recovering/Resolving]
  - Oropharyngeal pain [Unknown]
  - Vomiting [Unknown]
  - Eating disorder [Recovered/Resolved]
  - Cystitis [Recovered/Resolved]
  - Iron deficiency anaemia [Recovered/Resolved]
  - Acute tonsillitis [Recovered/Resolved]
  - Bronchitis [Recovered/Resolved]
  - Feeding disorder [Unknown]
  - Bronchitis [Recovering/Resolving]
  - Musculoskeletal stiffness [Unknown]
  - Bronchopneumonia [Recovered/Resolved]
  - Pollakiuria [Recovered/Resolved]
  - Upper respiratory tract infection [Recovered/Resolved]
  - Stomatitis [Recovered/Resolved]
  - Neutropenia [Recovered/Resolved]
  - Pyrexia [Recovered/Resolved]
  - Pyrexia [Unknown]
  - Upper respiratory tract infection [Recovered/Resolved]
  - Upper respiratory tract infection [Recovered/Resolved]
  - Poisoning [Recovered/Resolved]
  - Upper respiratory tract infection [Recovered/Resolved]
  - Upper respiratory tract infection [Recovered/Resolved]
  - Pain [Not Recovered/Not Resolved]

NARRATIVE: CASE EVENT DATE: 20120429
